FAERS Safety Report 5933019-X (Version None)
Quarter: 2008Q4

REPORT INFORMATION
  Report Type: 
  Country: None (occurrence: None)
  Receive Date: 20081023
  Receipt Date: 20081015
  Transmission Date: 20090506
  Serious: Yes (Other)
  Sender: FDA-Public Use
  Company Number: 2008BI027687

PATIENT
  Age: 41 Year
  Sex: Female

DRUGS (1)
  1. TYSABRI [Suspect]
     Indication: MULTIPLE SCLEROSIS
     Dosage: IV
     Route: 042
     Dates: start: 20080617

REACTIONS (6)
  - ATAXIA [None]
  - COMPLEX PARTIAL SEIZURES [None]
  - CONVULSION [None]
  - FALL [None]
  - MOBILITY DECREASED [None]
  - STATUS EPILEPTICUS [None]
